FAERS Safety Report 4296848-7 (Version None)
Quarter: 2004Q1

REPORT INFORMATION
  Report Type: 
  Country: None (occurrence: None)
  Receive Date: 20040126
  Receipt Date: 20030708
  Transmission Date: 20041129
  Serious: No
  Sender: FDA-Public Use
  Company Number: USA030740998

PATIENT
  Age: 6 Year
  Sex: Male
  Weight: 28 kg

DRUGS (1)
  1. STRATTERA [Suspect]
     Dosage: 80 MG/DAY
     Dates: start: 20030201

REACTIONS (4)
  - DRUG INEFFECTIVE [None]
  - DYSPEPSIA [None]
  - MOOD SWINGS [None]
  - PRESCRIBED OVERDOSE [None]
